FAERS Safety Report 23292109 (Version 1)
Quarter: 2023Q4

REPORT INFORMATION
  Report Type: Spontaneous
  Country: US (occurrence: None)
  Receive Date: 20231212
  Receipt Date: 20231212
  Transmission Date: 20240110
  Serious: Yes (Hospitalization)
  Sender: FDA-Public Use
  Company Number: None

PATIENT
  Age: 46 Year
  Sex: Female

DRUGS (18)
  1. HUMIRA [Suspect]
     Active Substance: ADALIMUMAB
     Dosage: DOSE: 40MG/0.4ML (40MG) EVERY 14 DAYS
     Route: 058
  2. AMITRIPTYLIN 100MG [Concomitant]
  3. AMITRIPTYLIN 25MG [Concomitant]
  4. ATORVASTATIN [Concomitant]
  5. BUSPIRONE TAB [Concomitant]
  6. CLONAZEPAM TAB [Concomitant]
  7. CLOZAPINE [Concomitant]
  8. COSENTYX [Concomitant]
     Active Substance: SECUKINUMAB
  9. FLUOXETINE CAP [Concomitant]
  10. HYDROCO/APAP TAB [Concomitant]
  11. LOVASTATIN TAB [Concomitant]
  12. METHOCARBAM TAB [Concomitant]
  13. OMEPRAZOLE CAP [Concomitant]
  14. ONDANSETRON TAB [Concomitant]
  15. PREDNISONE TAB 10MG [Concomitant]
  16. QUETIAPINE TAB [Concomitant]
  17. TOPAMAX TAB 100MG [Concomitant]
  18. TOPIRAMATE TAB 25MG [Concomitant]

REACTIONS (5)
  - Gait disturbance [None]
  - Back pain [None]
  - Sciatica [None]
  - Ankylosing spondylitis [None]
  - Urinary incontinence [None]

NARRATIVE: CASE EVENT DATE: 20231128
